FAERS Safety Report 10483762 (Version 1)
Quarter: 2014Q3

REPORT INFORMATION
  Report Type: Spontaneous
  Country: US (occurrence: None)
  Receive Date: 20140929
  Receipt Date: 20140929
  Transmission Date: 20150326
  Serious: Yes (Hospitalization, Disabling)
  Sender: FDA-Public Use
  Company Number: None

PATIENT
  Age: 26 Year

DRUGS (1)
  1. ONFI [Suspect]
     Active Substance: CLOBAZAM
     Indication: CONVULSION
     Route: 048
     Dates: start: 20140201, end: 20140926

REACTIONS (3)
  - Scab [None]
  - Capillary leak syndrome [None]
  - Rash [None]

NARRATIVE: CASE EVENT DATE: 20140709
